FAERS Safety Report 8620198-9 (Version None)
Quarter: 2012Q3

REPORT INFORMATION
  Report Type: 
  Country: None (occurrence: None)
  Receive Date: 20120824
  Receipt Date: 20120822
  Transmission Date: 20120928
  Serious: Yes (Death)
  Sender: FDA-Public Use
  Company Number: PHHY2012CH072963

PATIENT
  Age: 81 Year
  Sex: Female

DRUGS (6)
  1. XARELTO [Suspect]
     Indication: ATRIAL FLUTTER
  2. METOPROLOL SUCCINATE [Suspect]
     Indication: ATRIAL FLUTTER
  3. PANTOPRAZOLE [Concomitant]
     Dosage: 40 MG, QD
     Route: 048
     Dates: start: 20120619, end: 20120621
  4. NOVALGIN [Concomitant]
     Dosage: 2 G, UNK
     Route: 048
     Dates: start: 20120613, end: 20120621
  5. METOPROLOL SUCCINATE [Suspect]
     Indication: ATRIAL FIBRILLATION
     Dosage: 25 MG, UNK
     Route: 048
     Dates: start: 20120617, end: 20120621
  6. XARELTO [Suspect]
     Indication: ATRIAL FIBRILLATION
     Dosage: 20 MG, UNK
     Route: 048
     Dates: start: 20120620, end: 20120621

REACTIONS (4)
  - DEPRESSED LEVEL OF CONSCIOUSNESS [None]
  - CEREBRAL HAEMORRHAGE [None]
  - COGNITIVE DISORDER [None]
  - EPILEPSY [None]
